FAERS Safety Report 8155687-7 (Version None)
Quarter: 2012Q1

REPORT INFORMATION
  Report Type: 
  Country: None (occurrence: None)
  Receive Date: 20120222
  Receipt Date: 20120215
  Transmission Date: 20120608
  Serious: No
  Sender: FDA-Public Use
  Company Number: US-PFIZER INC-2012041348

PATIENT
  Sex: Male
  Weight: 95.238 kg

DRUGS (2)
  1. CADUET [Concomitant]
     Indication: HYPERTENSION
     Dosage: UNK
  2. CELEBREX [Suspect]
     Indication: ARTHRITIS
     Dosage: 200 MG, 2X/DAY
     Route: 048

REACTIONS (5)
  - GASTROOESOPHAGEAL REFLUX DISEASE [None]
  - PAIN [None]
  - DRUG INEFFECTIVE [None]
  - BLOOD CHOLESTEROL INCREASED [None]
  - GOUT [None]
